FAERS Safety Report 14266119 (Version 3)
Quarter: 2019Q3

REPORT INFORMATION
  Report Type: Report from Study
  Country: FR (occurrence: FR)
  Receive Date: 20171209
  Receipt Date: 20190903
  Transmission Date: 20191004
  Serious: Yes (Other)
  Sender: FDA-Public Use
  Company Number: FR-MYLANLABS-2017M1076463

PATIENT
  Sex: Male
  Weight: .61 kg

DRUGS (7)
  1. BARACLUDE [Suspect]
     Active Substance: ENTECAVIR
     Indication: HEPATITIS B
     Dosage: 0.5 MILLIGRAM, QD
     Route: 064
     Dates: start: 20111007, end: 20150311
  2. ENTECAVIR. [Suspect]
     Active Substance: ENTECAVIR
     Indication: PRODUCT USED FOR UNKNOWN INDICATION
     Dosage: UNK
     Route: 064
     Dates: start: 20111007, end: 20150311
  3. EMTRICITABINE/TENOFOVIR DISOPROXIL FUMARATE [Suspect]
     Active Substance: EMTRICITABINE\TENOFOVIR DISOPROXIL FUMARATE
     Indication: HEPATITIS B
     Dosage: 245 MILLIGRAM, QD
     Route: 064
     Dates: start: 20150311, end: 20150705
  4. TENOFOVIR DISOPROXIL MYLAN 245 MG [Suspect]
     Active Substance: TENOFOVIR DISOPROXIL
     Dosage: 245 MILLIGRAM, QD
     Route: 064
     Dates: start: 20150311, end: 20150705
  5. BARACLUDE [Suspect]
     Active Substance: ENTECAVIR
     Dosage: 0.5 MILLIGRAM, QD
     Route: 064
     Dates: start: 20150311
  6. TENOFOVIR DISOPROXIL MYLAN 245 MG [Suspect]
     Active Substance: TENOFOVIR DISOPROXIL
     Indication: HEPATITIS B
     Dosage: UNK
     Route: 064
  7. ENTECAVIR. [Suspect]
     Active Substance: ENTECAVIR
     Dosage: UNK
     Route: 064
     Dates: start: 20150101, end: 20150311

REACTIONS (4)
  - Foetal heart rate abnormal [Unknown]
  - Foetal hypokinesia [Unknown]
  - Neonatal respiratory distress [Unknown]
  - Foetal exposure during pregnancy [Recovered/Resolved]

NARRATIVE: CASE EVENT DATE: 20150311
